FAERS Safety Report 5748667-X (Version None)
Quarter: 2008Q2

REPORT INFORMATION
  Report Type: 
  Country: None (occurrence: None)
  Receive Date: 20080521
  Receipt Date: 20080507
  Transmission Date: 20081010
  Serious: Yes (Hospitalization)
  Sender: FDA-Public Use
  Company Number: 2008001096

PATIENT
  Age: 56 Year
  Sex: Male
  Weight: 64.2 kg

DRUGS (11)
  1. ERLOTINIB(ERLOTINIB) (TABLET) (ERLOTINIB) [Suspect]
     Indication: NON-SMALL CELL LUNG CANCER
     Dosage: (QD)
     Dates: start: 20080216, end: 20080410
  2. ENZASTAURIN [Suspect]
     Dosage: (1125 MG,QD), ORAL
     Route: 048
     Dates: start: 20080216, end: 20080216
  3. TEGRETOL [Suspect]
     Dates: start: 20080410
  4. KEPPRA [Concomitant]
  5. PROZAC [Concomitant]
  6. ZYRTEC [Concomitant]
  7. VYTORIN [Concomitant]
  8. LOTREL [Concomitant]
  9. EFFEXOR [Concomitant]
  10. FLONASE [Concomitant]
  11. VICODIN [Concomitant]

REACTIONS (7)
  - ATAXIA [None]
  - DIPLOPIA [None]
  - DISEASE PROGRESSION [None]
  - DRUG INTERACTION [None]
  - DRUG LEVEL INCREASED [None]
  - HAEMOGLOBIN DECREASED [None]
  - NON-SMALL CELL LUNG CANCER [None]
